FAERS Safety Report 7080029-8 (Version None)
Quarter: 2010Q4

REPORT INFORMATION
  Report Type: 
  Country: None (occurrence: None)
  Receive Date: 20101102
  Receipt Date: 20100325
  Transmission Date: 20110411
  Serious: No
  Sender: FDA-Public Use
  Company Number: US-ABBOTT-10P-163-0629334-00

PATIENT
  Sex: Female
  Weight: 54.026 kg

DRUGS (4)
  1. BIAXIN [Suspect]
     Indication: LYME DISEASE
     Route: 058
     Dates: start: 20080101
  2. BIAXIN [Suspect]
  3. PLAQUENIL [Suspect]
     Indication: LYME DISEASE
     Route: 048
     Dates: start: 20080101
  4. RIFAMPICIN [Suspect]
     Indication: LYME DISEASE
     Dates: start: 20080101

REACTIONS (1)
  - HYPERTENSION [None]
